FAERS Safety Report 5871474-4 (Version None)
Quarter: 2008Q3

REPORT INFORMATION
  Report Type: 
  Country: None (occurrence: None)
  Receive Date: 20080905
  Receipt Date: 20080204
  Transmission Date: 20090109
  Serious: No
  Sender: FDA-Public Use
  Company Number: A0708442A

PATIENT
  Sex: Female

DRUGS (1)
  1. REQUIP [Suspect]
     Indication: DRUG USE FOR UNKNOWN INDICATION
     Dosage: 1MG UNKNOWN
     Route: 048
     Dates: start: 20080101

REACTIONS (5)
  - DIZZINESS [None]
  - DYSPNOEA [None]
  - FATIGUE [None]
  - NAUSEA [None]
  - PAIN IN EXTREMITY [None]
